APPROVED DRUG PRODUCT: ABIRATERONE ACETATE
Active Ingredient: ABIRATERONE ACETATE
Strength: 500MG
Dosage Form/Route: TABLET;ORAL
Application: A208416 | Product #002 | TE Code: AB
Applicant: DR REDDYS LABORATORIES LTD
Approved: Sep 1, 2023 | RLD: No | RS: No | Type: RX